FAERS Safety Report 11832578 (Version 2)
Quarter: 2016Q1

REPORT INFORMATION
  Report Type: Report from Study
  Country: US (occurrence: US)
  Receive Date: 20151214
  Receipt Date: 20160309
  Transmission Date: 20160525
  Serious: No
  Sender: FDA-Public Use
  Company Number: US-TAKEDA-2015TUS017752

PATIENT
  Age: 54 Year
  Sex: Female
  Weight: 112.93 kg

DRUGS (4)
  1. ALLEGRA [Concomitant]
     Active Substance: FEXOFENADINE HYDROCHLORIDE
     Indication: URTICARIA
     Dosage: 180 MG, BID
     Route: 048
     Dates: start: 201508
  2. NALTREXONE, BUPROPION [Suspect]
     Active Substance: BUPROPION HYDROCHLORIDE\NALTREXONE HYDROCHLORIDE
     Dosage: 8/90 MG, BID
     Route: 048
     Dates: start: 20151128
  3. NALTREXONE, BUPROPION [Suspect]
     Active Substance: BUPROPION HYDROCHLORIDE\NALTREXONE HYDROCHLORIDE
     Indication: OBESITY
     Dosage: 8/90 MG  QD
     Route: 048
     Dates: start: 20151121, end: 20151127
  4. ZANTAC [Concomitant]
     Active Substance: RANITIDINE HYDROCHLORIDE
     Indication: GASTROOESOPHAGEAL REFLUX DISEASE
     Dosage: UNK, BID
     Route: 048
     Dates: start: 201508

REACTIONS (1)
  - Nasopharyngitis [Unknown]

NARRATIVE: CASE EVENT DATE: 20151203
